FAERS Safety Report 26174026 (Version 1)
Quarter: 2025Q4

REPORT INFORMATION
  Report Type: Report from Study
  Country: US (occurrence: None)
  Receive Date: 20251218
  Receipt Date: 20251218
  Transmission Date: 20260117
  Serious: Yes (Hospitalization, Other)
  Sender: UCB
  Company Number: US-UCBSA-2025079829

PATIENT
  Age: 66 Year

DRUGS (1)
  1. MIDAZOLAM [Suspect]
     Active Substance: MIDAZOLAM
     Indication: Epilepsy
     Dosage: 5MG SPRAY INTO EACH NOSTRIL AS NEEDED.

REACTIONS (2)
  - Seizure [Recovered/Resolved]
  - Vomiting [Recovered/Resolved]
